FAERS Safety Report 6162838-2 (Version None)
Quarter: 2009Q2

REPORT INFORMATION
  Report Type: 
  Country: None (occurrence: None)
  Receive Date: 20090421
  Receipt Date: 20081002
  Transmission Date: 20091009
  Serious: No
  Sender: FDA-Public Use
  Company Number: US-ASTRAZENECA-2008UW21308

PATIENT
  Age: 62 Year
  Sex: Female

DRUGS (1)
  1. TOPROL-XL [Suspect]
     Dosage: 100 MG
     Route: 048
     Dates: start: 20000101

REACTIONS (4)
  - DRY MOUTH [None]
  - POLLAKIURIA [None]
  - SOMNOLENCE [None]
  - THIRST [None]
